FAERS Safety Report 7272021-5 (Version None)
Quarter: 2011Q1

REPORT INFORMATION
  Report Type: 
  Country: None (occurrence: None)
  Receive Date: 20110203
  Receipt Date: 20110124
  Transmission Date: 20110831
  Serious: Yes (Other)
  Sender: FDA-Public Use
  Company Number: US-SANOFI-AVENTIS-2011SA005331

PATIENT
  Age: 68 Year
  Sex: Male

DRUGS (3)
  1. MULTAQ [Suspect]
     Indication: ATRIAL FIBRILLATION
     Route: 048
     Dates: start: 20101118
  2. METOPROLOL TARTRATE [Concomitant]
     Indication: ATRIAL FIBRILLATION
     Route: 065
  3. MULTAQ [Suspect]
     Indication: ATRIAL TACHYCARDIA
     Route: 048
     Dates: start: 20101118

REACTIONS (1)
  - ATRIAL FIBRILLATION [None]
